FAERS Safety Report 5423816-1 (Version None)
Quarter: 2007Q3

REPORT INFORMATION
  Report Type: 
  Country: None (occurrence: None)
  Receive Date: 20070823
  Receipt Date: 20070815
  Transmission Date: 20080115
  Serious: Yes (Other)
  Sender: FDA-Public Use
  Company Number: US-ELI_LILLY_AND_COMPANY-US200708003213

PATIENT
  Sex: Male

DRUGS (9)
  1. HUMALOG [Suspect]
     Dates: start: 20060101
  2. LANTUS [Concomitant]
     Dosage: UNK, DAILY (1/D)
  3. COREG [Concomitant]
     Dosage: 20 MG, DAILY (1/D)
  4. LOVASTATIN [Concomitant]
     Dosage: 40 MG/KG, UNK
  5. ALTACE [Concomitant]
     Dosage: 10 MG, UNK
  6. PLAVIX [Concomitant]
     Dosage: 75 MG, DAILY (1/D)
  7. LEVOTHYROXINE SODIUM [Concomitant]
     Dosage: 50 MG, DAILY (1/D)
  8. ASPIRIN [Concomitant]
  9. VITAMINS-MINERALS THERAPEUTIC [Concomitant]

REACTIONS (2)
  - CATARACT [None]
  - EYE HAEMORRHAGE [None]
